FAERS Safety Report 9358149 (Version 2)
Quarter: 2013Q4

REPORT INFORMATION
  Report Type: Spontaneous
  Country: US (occurrence: US)
  Receive Date: 20130620
  Receipt Date: 20131028
  Transmission Date: 20140711
  Serious: Yes (Life-Threatening, Hospitalization)
  Sender: FDA-Public Use
  Company Number: US-BAYER-2013-074093

PATIENT
  Age: 22 Year
  Sex: Female
  Weight: 96.15 kg

DRUGS (4)
  1. YASMIN [Suspect]
     Dosage: UNK
  2. YAZ [Suspect]
     Dosage: UNK
  3. MINOCYCLINE [Concomitant]
     Dosage: 100 MG, UNK
     Route: 048
     Dates: start: 20080206
  4. BENZACLIN [Concomitant]
     Dosage: 50 MG, UNK
     Route: 061
     Dates: start: 20080206

REACTIONS (8)
  - Pulmonary embolism [None]
  - Deep vein thrombosis [Recovered/Resolved]
  - Injury [Recovered/Resolved]
  - Anxiety [None]
  - Anhedonia [None]
  - Fear of disease [None]
  - Emotional distress [None]
  - Pain [Recovered/Resolved]
